FAERS Safety Report 8136471-7 (Version None)
Quarter: 2012Q1

REPORT INFORMATION
  Report Type: 
  Country: None (occurrence: None)
  Receive Date: 20120210
  Receipt Date: 20120125
  Transmission Date: 20120608
  Serious: Yes (Life-Threatening, Hospitalization)
  Sender: FDA-Public Use
  Company Number: DSA_53400_2012

PATIENT
  Age: 75 Year
  Sex: Male

DRUGS (7)
  1. ASPIRIN [Concomitant]
  2. SIMVASTATIN [Concomitant]
  3. METOPROLOL SUCCINATE [Concomitant]
  4. ENALAPRIL MALEATE [Suspect]
     Indication: CARDIAC FAILURE
     Dosage: (DF ORAL)
     Route: 048
     Dates: end: 20111129
  5. TRAMADOL HCL [Suspect]
     Indication: PRODUCT USED FOR UNKNOWN INDICATION
     Dosage: (DF ORAL)
     Route: 048
     Dates: start: 20111101, end: 20111129
  6. ACETAMINOPHEN [Concomitant]
  7. SPIRONOLACTONE [Concomitant]

REACTIONS (6)
  - DYSARTHRIA [None]
  - FALL [None]
  - CHEST INJURY [None]
  - APPARENT LIFE THREATENING EVENT [None]
  - CONFUSIONAL STATE [None]
  - ANGIOEDEMA [None]
